FAERS Safety Report 6030594-4 (Version None)
Quarter: 2009Q1

REPORT INFORMATION
  Report Type: 
  Country: None (occurrence: None)
  Receive Date: 20090106
  Receipt Date: 20090106
  Transmission Date: 20090719
  Serious: Yes (Death, Life-Threatening, Hospitalization)
  Sender: FDA-Public Use
  Company Number: None

PATIENT
  Age: 54 Year
  Sex: Male
  Weight: 116.1208 kg

DRUGS (2)
  1. HYDROCHLOROTHIAZIDE [Suspect]
     Indication: HYPERTENSION
     Dosage: ONE TABLET EVERY MORNING PO
     Route: 048
  2. HYDROCHLOROTHIAZIDE [Suspect]
     Indication: PHYSICAL EXAMINATION
     Dosage: ONE TABLET EVERY MORNING PO
     Route: 048

REACTIONS (1)
  - RENAL CANCER [None]
